FAERS Safety Report 7161982-0 (Version None)
Quarter: 2010Q4

REPORT INFORMATION
  Report Type: 
  Country: None (occurrence: None)
  Receive Date: 20101215
  Receipt Date: 20101207
  Transmission Date: 20110411
  Serious: Yes (Disabling)
  Sender: FDA-Public Use
  Company Number: JP-ROCHE-616700

PATIENT
  Age: 21 Year
  Sex: Male
  Weight: 46 kg

DRUGS (6)
  1. CELLCEPT [Suspect]
     Indication: PROPHYLAXIS AGAINST TRANSPLANT REJECTION
     Route: 048
     Dates: start: 20060828, end: 20061016
  2. PREDNISOLONE [Concomitant]
     Route: 048
     Dates: start: 20060901
  3. TACROLIMUS [Concomitant]
     Route: 048
     Dates: start: 20060826
  4. SIMULECT [Concomitant]
     Dosage: UNCERTAINTY
     Route: 042
     Dates: start: 20060101
  5. BLOPRESS [Concomitant]
     Route: 048
     Dates: start: 20060920
  6. TAKEPRON [Concomitant]
     Route: 048
     Dates: start: 20060929

REACTIONS (2)
  - GRANULOMA [None]
  - JUVENILE ARTHRITIS [None]
